FAERS Safety Report 24115756 (Version 1)
Quarter: 2024Q3

REPORT INFORMATION
  Report Type: Spontaneous
  Country: FR (occurrence: FR)
  Receive Date: 20240721
  Receipt Date: 20240721
  Transmission Date: 20241017
  Serious: Yes (Other)
  Sender: BAYER
  Company Number: FR-BAYER-2024A066372

PATIENT
  Age: 71 Year
  Sex: Male

DRUGS (9)
  1. APROTININ [Suspect]
     Active Substance: APROTININ
     Indication: Anaesthesia
     Dosage: UNK
     Route: 042
     Dates: start: 202212, end: 202212
  2. APROTININ [Suspect]
     Active Substance: APROTININ
     Indication: Procedural haemorrhage
  3. PANTOPRAZOLE [Concomitant]
     Active Substance: PANTOPRAZOLE
     Dosage: 20 MG, QD (1 TABLET/ DAY ORALLY)
     Route: 048
  4. KARDEGIC [Concomitant]
     Active Substance: ASPIRIN DL-LYSINE
     Dosage: 75 MG, QD  (1 SACHET/ DAY ORALLY)
     Route: 048
  5. CHOLECALCIFEROL [Concomitant]
     Active Substance: CHOLECALCIFEROL
     Dosage: 100000 IU INTERNATIONAL UNIT(S),1 AMPOULE
     Route: 048
  6. CEFAZOLIN [Concomitant]
     Active Substance: CEFAZOLIN
     Dosage: UNK
     Dates: start: 202212, end: 202212
  7. SUFENTA [Concomitant]
     Active Substance: SUFENTANIL CITRATE
     Dosage: UNK
     Dates: start: 202212, end: 202212
  8. PROPOFOL [Concomitant]
     Active Substance: PROPOFOL
     Dosage: UNK
     Dates: start: 202212, end: 202212
  9. CISATRACURIUM [Concomitant]
     Active Substance: CISATRACURIUM
     Dosage: UNK
     Dates: start: 202212, end: 202212

REACTIONS (4)
  - Anaphylactic reaction [Recovered/Resolved]
  - Face oedema [Recovered/Resolved]
  - Hypotension [Recovered/Resolved]
  - Erythema [Recovered/Resolved]

NARRATIVE: CASE EVENT DATE: 20221201
